FAERS Safety Report 5198712-8 (Version None)
Quarter: 2007Q1

REPORT INFORMATION
  Report Type: 
  Country: None (occurrence: None)
  Receive Date: 20070104
  Receipt Date: 20061222
  Transmission Date: 20070707
  Serious: Yes (Other)
  Sender: FDA-Public Use
  Company Number: US-ELI_LILLY_AND_COMPANY-US200612001088

PATIENT
  Age: 23 Year
  Sex: Male
  Weight: 94.331 kg

DRUGS (2)
  1. CYMBALTA [Suspect]
     Indication: SLEEP TERROR
     Dosage: 30 MG, DAILY (1/D)
     Route: 048
     Dates: start: 20061024, end: 20061109
  2. BENTYL [Concomitant]
     Dosage: 20 MG, 4/D

REACTIONS (15)
  - ALANINE AMINOTRANSFERASE INCREASED [None]
  - ASPARTATE AMINOTRANSFERASE INCREASED [None]
  - BLOOD PRESSURE INCREASED [None]
  - CONFUSIONAL STATE [None]
  - HEART RATE INCREASED [None]
  - HYPERHIDROSIS [None]
  - MUSCLE RIGIDITY [None]
  - MYALGIA [None]
  - MYOCLONUS [None]
  - NAUSEA [None]
  - PHARMACEUTICAL PRODUCT COMPLAINT [None]
  - RESTLESSNESS [None]
  - SEROTONIN SYNDROME [None]
  - TREMOR [None]
  - VOMITING [None]
